FAERS Safety Report 7393664-4 (Version None)
Quarter: 2011Q2

REPORT INFORMATION
  Report Type: 
  Country: None (occurrence: None)
  Receive Date: 20110405
  Receipt Date: 20090809
  Transmission Date: 20111010
  Serious: Yes (Death, Hospitalization, Other)
  Sender: FDA-Public Use
  Company Number: US-BAYER-200929848NA

PATIENT
  Sex: Male
  Weight: 87 kg

DRUGS (23)
  1. TRASYLOL [Suspect]
     Indication: CORONARY ARTERY BYPASS
     Dosage: 1 ML, UNK
     Route: 042
     Dates: start: 20070813, end: 20070813
  2. TRASYLOL [Suspect]
     Dosage: 100ML, FOLLOWED BY A CONTINUOUS INFUSION AT 50CC/HR
     Route: 042
     Dates: start: 20070813, end: 20070813
  3. TOPROL-XL [Concomitant]
     Dosage: 25 MG, UNK
     Route: 048
     Dates: start: 20070731
  4. PANCURONIUM BROMIDE [Concomitant]
     Dosage: 10 MG, UNK
     Route: 042
     Dates: start: 20070813
  5. INSULIN HUMAN [Concomitant]
     Dosage: 20 U, UNK
     Route: 042
     Dates: start: 20070813
  6. PROTAMINE SULFATE [Concomitant]
     Dosage: 300 MG, UNK
     Route: 042
     Dates: start: 20070813
  7. LIDOCAINE [Concomitant]
     Dosage: 200 MG, UNK
     Route: 042
     Dates: start: 20070813
  8. LASIX [Concomitant]
     Dosage: 20 MG, UNK
     Route: 048
     Dates: start: 20070612
  9. ETOMIDATE [Concomitant]
     Dosage: UNK
     Route: 042
     Dates: start: 20070813
  10. VANCOMYCIN [Concomitant]
     Dosage: 1 G, UNK
     Route: 042
     Dates: start: 20070813
  11. HEPARIN SODIUM [Concomitant]
     Dosage: 3CC/HR
     Route: 042
     Dates: start: 20070813
  12. LIPITOR [Concomitant]
     Dosage: 10 MG, UNK
     Route: 048
  13. COUMADIN [Concomitant]
     Dosage: 2.5-3 MG
     Route: 048
  14. PROTAMINE SULFATE [Concomitant]
     Dosage: 400 MG, UNK
     Route: 042
     Dates: start: 20070813
  15. AVELOX [Concomitant]
     Dosage: UNK UNK, QD
     Route: 042
     Dates: start: 20080122
  16. VERSED [Concomitant]
     Dosage: 2 MG, UNK
     Route: 042
     Dates: start: 20070813
  17. EPINEPHRINE [Concomitant]
     Dosage: 1 MG, UNK
     Route: 042
     Dates: start: 20070813, end: 20070814
  18. TRASYLOL [Suspect]
     Indication: AORTIC VALVE REPLACEMENT
     Dosage: 200 CC PUMP PRIME
     Route: 042
     Dates: start: 20070813, end: 20070813
  19. MILRINONE [Concomitant]
     Dosage: 3 MG, UNK
     Route: 042
     Dates: start: 20070813
  20. SCOPOLAMINE [Concomitant]
     Dosage: 0.2 MG, UNK
     Route: 030
     Dates: start: 20070813
  21. PHENYLEPHRINE HCL [Concomitant]
     Dosage: 6 MG, UNK
     Route: 042
     Dates: start: 20070813
  22. LEVOPHED [Concomitant]
     Dosage: 0.2 MG, UNK
     Route: 042
     Dates: start: 20070813
  23. LIDOCAINE [Concomitant]
     Dosage: 100 MG, UNK
     Route: 042
     Dates: start: 20070813

REACTIONS (12)
  - RENAL INJURY [None]
  - EMOTIONAL DISTRESS [None]
  - STRESS [None]
  - FEAR [None]
  - ANHEDONIA [None]
  - PAIN [None]
  - UNEVALUABLE EVENT [None]
  - RENAL IMPAIRMENT [None]
  - DEATH [None]
  - RENAL FAILURE [None]
  - ANXIETY [None]
  - INJURY [None]
